FAERS Safety Report 5493302-1 (Version None)
Quarter: 2007Q4

REPORT INFORMATION
  Report Type: 
  Country: None (occurrence: None)
  Receive Date: 20071023
  Receipt Date: 20060908
  Transmission Date: 20080405
  Serious: Yes (Hospitalization, Other)
  Sender: FDA-Public Use
  Company Number: US-BRISTOL-MYERS SQUIBB COMPANY-13531025

PATIENT

DRUGS (1)
  1. KENALOG-40 [Suspect]
     Route: 031

REACTIONS (3)
  - EYE INFECTION [None]
  - EYE INFLAMMATION [None]
  - VISUAL ACUITY REDUCED [None]
